FAERS Safety Report 7477924-4 (Version None)
Quarter: 2011Q2

REPORT INFORMATION
  Report Type: 
  Country: None (occurrence: None)
  Receive Date: 20110513
  Receipt Date: 20080616
  Transmission Date: 20111010
  Serious: Yes (Death, Hospitalization, Other)
  Sender: FDA-Public Use
  Company Number: US-BAYER-200825760NA

PATIENT
  Age: 83 Year
  Sex: Female
  Weight: 66.213 kg

DRUGS (17)
  1. CARDIZEM LA [Concomitant]
     Dosage: 180 MG, QD
     Route: 048
  2. PLASMA [Concomitant]
  3. COUMADIN [Concomitant]
     Dosage: 5 MG, QD
     Route: 048
  4. MANNITOL [Concomitant]
     Dosage: UNK
     Route: 042
     Dates: start: 20050524
  5. PLATELETS [Concomitant]
  6. CELEBREX [Concomitant]
  7. HEPARIN [Concomitant]
     Dosage: UNK
     Route: 042
     Dates: start: 20050524
  8. ALBUMIN NOS [Concomitant]
     Dosage: UNK
     Route: 042
     Dates: start: 20050524
  9. TRASYLOL [Suspect]
     Indication: CORONARY ARTERY BYPASS
     Dosage: TEST DOSE (200ML PUMP PRIME) LOADING DOSE (FULL PROTOCOL)
     Route: 042
     Dates: start: 20050524, end: 20050524
  10. TRASYLOL [Suspect]
     Indication: MITRAL VALVE REPLACEMENT
  11. PROTAMINE SULFATE [Concomitant]
     Dosage: UNK
     Route: 042
     Dates: start: 20050524
  12. TRASYLOL [Suspect]
     Indication: CARDIAC ABLATION
  13. VERSED [Concomitant]
  14. ACETYLSALICYLIC ACID SRT [Concomitant]
     Dosage: 81 MG, QD
     Route: 048
  15. RED BLOOD CELLS [Concomitant]
  16. FENTANYL [Concomitant]
     Dosage: UNK
     Route: 042
     Dates: start: 20050524
  17. AMIODARONE HCL [Concomitant]
     Dosage: PER PROTOCOL
     Route: 042
     Dates: start: 20050524

REACTIONS (3)
  - DEATH [None]
  - RENAL FAILURE [None]
  - INJURY [None]
